FAERS Safety Report 19592899 (Version 2)
Quarter: 2021Q3

REPORT INFORMATION
  Report Type: Report from Study
  Country: US (occurrence: US)
  Receive Date: 20210722
  Receipt Date: 20210813
  Transmission Date: 20211014
  Serious: Yes (Hospitalization)
  Sender: FDA-Public Use
  Company Number: US-TAIHO ONCOLOGY  INC-EU-2021-02257

PATIENT
  Age: 66 Year
  Sex: Female

DRUGS (7)
  1. LONSURF [Suspect]
     Active Substance: TIPIRACIL HYDROCHLORIDE\TRIFLURIDINE
     Indication: PANCREATIC CARCINOMA
     Dosage: CYCLE 1
     Route: 048
     Dates: start: 20210427
  2. LONSURF [Suspect]
     Active Substance: TIPIRACIL HYDROCHLORIDE\TRIFLURIDINE
     Indication: PANCREATIC CARCINOMA
  3. DRONABINOL. [Concomitant]
     Active Substance: DRONABINOL
  4. MORPHINE SULPHATE [Concomitant]
     Active Substance: MORPHINE SULFATE
  5. CRANBERRY. [Concomitant]
     Active Substance: CRANBERRY
  6. OLANZAPINE. [Concomitant]
     Active Substance: OLANZAPINE
  7. ONDANSETRON [Concomitant]
     Active Substance: ONDANSETRON

REACTIONS (4)
  - Pulmonary embolism [Unknown]
  - Deep vein thrombosis [Unknown]
  - Off label use [Unknown]
  - Hypoxia [Unknown]

NARRATIVE: CASE EVENT DATE: 2021
